FAERS Safety Report 20773249 (Version 6)
Quarter: 2022Q4

REPORT INFORMATION
  Report Type: Report from Study
  Country: ES (occurrence: ES)
  Receive Date: 20220502
  Receipt Date: 20221208
  Transmission Date: 20230113
  Serious: Yes (Death, Life-Threatening, Hospitalization, Other)
  Sender: FDA-Public Use
  Company Number: ES-BRISTOL-MYERS SQUIBB COMPANY-2022-023480

PATIENT
  Age: 66 Year
  Sex: Male

DRUGS (56)
  1. POMALIDOMIDE [Suspect]
     Active Substance: POMALIDOMIDE
     Indication: Plasma cell myeloma
     Dosage: DAY 1-21 OF 28 DAY CYCLE
     Route: 048
     Dates: start: 20211102, end: 20211122
  2. POMALIDOMIDE [Suspect]
     Active Substance: POMALIDOMIDE
     Route: 048
     Dates: start: 20211203, end: 20211223
  3. POMALIDOMIDE [Suspect]
     Active Substance: POMALIDOMIDE
     Route: 048
     Dates: start: 20220323, end: 20220405
  4. POMALIDOMIDE [Suspect]
     Active Substance: POMALIDOMIDE
     Route: 048
  5. DEXAMETHASONE [Suspect]
     Active Substance: DEXAMETHASONE
     Indication: Plasma cell myeloma
     Dosage: DAY 1, 8, 15 AND 22 OF 28 DAY CYCLE
     Route: 048
     Dates: start: 20211102, end: 20211123
  6. DEXAMETHASONE [Suspect]
     Active Substance: DEXAMETHASONE
     Dosage: ON DAY 1, 8, 15 AND 22 OF 28DAYS CYCLE
     Route: 048
     Dates: start: 20211203, end: 20211224
  7. DEXAMETHASONE [Suspect]
     Active Substance: DEXAMETHASONE
     Dosage: ON DAY 1, 8, 15 AND 22 OF 28DAYS CYCLE
     Route: 048
     Dates: start: 20220323, end: 20220330
  8. DEXAMETHASONE [Suspect]
     Active Substance: DEXAMETHASONE
     Route: 048
     Dates: end: 20220623
  9. BELANTAMAB MAFODOTIN [Suspect]
     Active Substance: BELANTAMAB MAFODOTIN
     Indication: Plasma cell myeloma
     Dosage: DAYS 1 OF 28 CYCLE.
     Route: 042
     Dates: start: 20211102, end: 20211102
  10. BELANTAMAB MAFODOTIN [Suspect]
     Active Substance: BELANTAMAB MAFODOTIN
     Route: 042
     Dates: start: 20211203, end: 20211203
  11. BELANTAMAB MAFODOTIN [Suspect]
     Active Substance: BELANTAMAB MAFODOTIN
     Route: 042
     Dates: start: 20220323, end: 20220323
  12. BELANTAMAB MAFODOTIN [Suspect]
     Active Substance: BELANTAMAB MAFODOTIN
     Route: 042
     Dates: end: 20220623
  13. FUROSEMIDE [Concomitant]
     Active Substance: FUROSEMIDE
  14. FUROSEMIDE [Concomitant]
     Active Substance: FUROSEMIDE
     Indication: Product used for unknown indication
  15. FUROSEMIDE [Concomitant]
     Active Substance: FUROSEMIDE
  16. FUROSEMIDE [Concomitant]
     Active Substance: FUROSEMIDE
     Dates: start: 20180810
  17. FUROSEMIDE [Concomitant]
     Active Substance: FUROSEMIDE
     Dates: start: 20211102
  18. FUROSEMIDE [Concomitant]
     Active Substance: FUROSEMIDE
  19. CLARITHROMYCIN [Concomitant]
     Active Substance: CLARITHROMYCIN
  20. CLARITHROMYCIN [Concomitant]
     Active Substance: CLARITHROMYCIN
     Indication: Product used for unknown indication
  21. CLARITHROMYCIN [Concomitant]
     Active Substance: CLARITHROMYCIN
  22. CLARITHROMYCIN [Concomitant]
     Active Substance: CLARITHROMYCIN
     Dates: start: 20220123
  23. CLARITHROMYCIN [Concomitant]
     Active Substance: CLARITHROMYCIN
  24. BISOPROLOL [Concomitant]
     Active Substance: BISOPROLOL
  25. BISOPROLOL [Concomitant]
     Active Substance: BISOPROLOL
     Indication: Product used for unknown indication
  26. BISOPROLOL [Concomitant]
     Active Substance: BISOPROLOL
     Dates: start: 2005
  27. BISOPROLOL [Concomitant]
     Active Substance: BISOPROLOL
  28. MAGNESIUM [Concomitant]
     Active Substance: MAGNESIUM
  29. MAGNESIUM [Concomitant]
     Active Substance: MAGNESIUM
     Indication: Product used for unknown indication
  30. MAGNESIUM [Concomitant]
     Active Substance: MAGNESIUM
  31. NEUPOGEN [Concomitant]
     Active Substance: FILGRASTIM
  32. NEUPOGEN [Concomitant]
     Active Substance: FILGRASTIM
     Indication: Product used for unknown indication
  33. NEUPOGEN [Concomitant]
     Active Substance: FILGRASTIM
     Dates: start: 20211102
  34. NEUPOGEN [Concomitant]
     Active Substance: FILGRASTIM
     Dates: start: 20211116
  35. NEUPOGEN [Concomitant]
     Active Substance: FILGRASTIM
  36. TERIPARATIDE [Concomitant]
     Active Substance: TERIPARATIDE
     Indication: Product used for unknown indication
     Route: 065
     Dates: start: 20220123, end: 20220130
  37. TERIPARATIDE [Concomitant]
     Active Substance: TERIPARATIDE
  38. TERIPARATIDE [Concomitant]
     Active Substance: TERIPARATIDE
  39. ACYCLOVIR [Concomitant]
     Active Substance: ACYCLOVIR
  40. ACYCLOVIR [Concomitant]
     Active Substance: ACYCLOVIR
     Indication: Product used for unknown indication
     Dates: start: 2012
  41. ACYCLOVIR [Concomitant]
     Active Substance: ACYCLOVIR
  42. ENOXAPARIN SODIUM [Concomitant]
     Active Substance: ENOXAPARIN SODIUM
  43. ENOXAPARIN SODIUM [Concomitant]
     Active Substance: ENOXAPARIN SODIUM
     Indication: Product used for unknown indication
  44. ENOXAPARIN SODIUM [Concomitant]
     Active Substance: ENOXAPARIN SODIUM
     Dates: start: 2012
  45. ENOXAPARIN SODIUM [Concomitant]
     Active Substance: ENOXAPARIN SODIUM
     Dates: start: 20211102
  46. ENOXAPARIN SODIUM [Concomitant]
     Active Substance: ENOXAPARIN SODIUM
  47. ATACAND [Concomitant]
     Active Substance: CANDESARTAN CILEXETIL
  48. ATACAND [Concomitant]
     Active Substance: CANDESARTAN CILEXETIL
     Indication: Product used for unknown indication
  49. ATACAND [Concomitant]
     Active Substance: CANDESARTAN CILEXETIL
     Dates: start: 2012
  50. ATACAND [Concomitant]
     Active Substance: CANDESARTAN CILEXETIL
     Dates: start: 2005
  51. ATACAND [Concomitant]
     Active Substance: CANDESARTAN CILEXETIL
  52. METFORMIN HYDROCHLORIDE [Concomitant]
     Active Substance: METFORMIN HYDROCHLORIDE
     Indication: Product used for unknown indication
     Dates: start: 20210609
  53. ATORVASTATIN [Concomitant]
     Active Substance: ATORVASTATIN
     Indication: Product used for unknown indication
     Dates: start: 2016
  54. POTASSIUM CHLORIDE [Concomitant]
     Active Substance: POTASSIUM CHLORIDE
     Indication: Product used for unknown indication
     Dates: start: 20211102
  55. EPREX [Concomitant]
     Active Substance: ERYTHROPOIETIN
     Indication: Product used for unknown indication
     Dates: start: 20211102
  56. OMEPRAZOLE [Concomitant]
     Active Substance: OMEPRAZOLE
     Indication: Product used for unknown indication
     Dates: start: 2012

REACTIONS (1)
  - Meningoencephalitis herpetic [Fatal]

NARRATIVE: CASE EVENT DATE: 20220407
